FAERS Safety Report 8588372-8 (Version None)
Quarter: 2012Q3

REPORT INFORMATION
  Report Type: 
  Country: None (occurrence: None)
  Receive Date: 20120813
  Receipt Date: 20120803
  Transmission Date: 20120928
  Serious: Yes (Hospitalization, Other)
  Sender: FDA-Public Use
  Company Number: US-US-EMD SERONO, INC.-7153126

PATIENT
  Sex: Female

DRUGS (1)
  1. REBIF [Suspect]
     Indication: MULTIPLE SCLEROSIS
     Route: 058
     Dates: start: 20091029

REACTIONS (10)
  - INJECTION SITE SCAR [None]
  - MOOD ALTERED [None]
  - WEIGHT INCREASED [None]
  - AUTOIMMUNE THYROIDITIS [None]
  - CHEST PAIN [None]
  - MIGRAINE [None]
  - YAWNING [None]
  - DYSPNOEA [None]
  - BLOOD IRON DECREASED [None]
  - FEELING ABNORMAL [None]
